FAERS Safety Report 23366544 (Version 2)
Quarter: 2024Q1

REPORT INFORMATION
  Report Type: Spontaneous
  Country: EG (occurrence: EG)
  Receive Date: 20240104
  Receipt Date: 20240301
  Transmission Date: 20240410
  Serious: Yes (Disabling)
  Sender: FDA-Public Use
  Company Number: EG-PFIZER INC-202300453958

PATIENT
  Age: 7 Year
  Sex: Female

DRUGS (1)
  1. XELJANZ [Suspect]
     Active Substance: TOFACITINIB CITRATE
     Dosage: UNK

REACTIONS (6)
  - Hypokinesia [Unknown]
  - Gait inability [Unknown]
  - General physical health deterioration [Unknown]
  - Drug ineffective [Unknown]
  - Product expiration date issue [Unknown]
  - Mobility decreased [Unknown]
